FAERS Safety Report 23695809 (Version 3)
Quarter: 2024Q2

REPORT INFORMATION
  Report Type: Spontaneous
  Country: FR (occurrence: FR)
  Receive Date: 20240402
  Receipt Date: 20240612
  Transmission Date: 20240716
  Serious: Yes (Hospitalization, Other)
  Sender: FDA-Public Use
  Company Number: FR-SANOFI-01995281

PATIENT
  Age: 82 Year
  Sex: Male

DRUGS (1)
  1. DUPIXENT [Suspect]
     Active Substance: DUPILUMAB
     Indication: Eczema
     Dosage: 300 MG, QOW
     Dates: start: 2024, end: 2024

REACTIONS (9)
  - Pneumonia [Unknown]
  - Diaphragmatic paralysis [Recovered/Resolved]
  - Renal neoplasm [Unknown]
  - Skin disorder [Unknown]
  - Skin fissures [Unknown]
  - Skin ulcer [Unknown]
  - Asthma [Recovering/Resolving]
  - Pain of skin [Unknown]
  - Intercepted product storage error [Unknown]

NARRATIVE: CASE EVENT DATE: 20240101
